FAERS Safety Report 10599548 (Version 1)
Quarter: 2014Q4

REPORT INFORMATION
  Report Type: Spontaneous
  Country: GB (occurrence: GB)
  Receive Date: 20141121
  Receipt Date: 20141121
  Transmission Date: 20150529
  Serious: Yes (Hospitalization, Other)
  Sender: FDA-Public Use
  Company Number: US-ASTRAZENECA-2014SE88665

PATIENT
  Age: 73 Year
  Sex: Male

DRUGS (7)
  1. FUROSEMIDE. [Suspect]
     Active Substance: FUROSEMIDE
     Indication: LEFT VENTRICULAR HYPERTROPHY
     Route: 048
     Dates: end: 20110625
  2. BISOPROLOL [Concomitant]
     Active Substance: BISOPROLOL
  3. BLOPRESS [Suspect]
     Active Substance: CANDESARTAN CILEXETIL
     Indication: LEFT VENTRICULAR HYPERTROPHY
     Route: 048
     Dates: end: 20110625
  4. PRAVASTATIN [Concomitant]
     Active Substance: PRAVASTATIN\PRAVASTATIN SODIUM
  5. GLYCERYL TRINITRATE [Concomitant]
     Active Substance: NITROGLYCERIN
     Dosage: AS NECESSARY
  6. SPIRONOLACTONE. [Suspect]
     Active Substance: SPIRONOLACTONE
     Indication: LEFT VENTRICULAR HYPERTROPHY
     Route: 048
     Dates: end: 20110625
  7. ASPIRIN. [Concomitant]
     Active Substance: ASPIRIN

REACTIONS (5)
  - Dyspnoea [Recovered/Resolved]
  - Rales [Unknown]
  - Acute kidney injury [Recovered/Resolved]
  - Hypotension [Recovered/Resolved]
  - Hyperkalaemia [Recovered/Resolved]

NARRATIVE: CASE EVENT DATE: 20110625
